FAERS Safety Report 4584062-7 (Version None)
Quarter: 2005Q1

REPORT INFORMATION
  Report Type: 
  Country: None (occurrence: None)
  Receive Date: 20050216
  Receipt Date: 20050203
  Transmission Date: 20050727
  Serious: Yes (Hospitalization)
  Sender: FDA-Public Use
  Company Number: CA-AMGEN-US112189

PATIENT
  Sex: Female
  Weight: 65.8 kg

DRUGS (13)
  1. ENBREL [Suspect]
     Indication: RHEUMATOID ARTHRITIS
     Route: 058
     Dates: start: 20041217, end: 20050203
  2. RANITIDINE [Concomitant]
     Route: 048
     Dates: start: 20040101
  3. ROCALTROL [Concomitant]
     Dates: start: 20040101
  4. COMBIVENT [Concomitant]
  5. ACTONEL (PROCTOR + GAMBLE) [Concomitant]
     Dates: start: 20010101
  6. LIPITOR [Concomitant]
     Dates: start: 20020101
  7. LEFLUNOMIDE [Concomitant]
  8. FERROUS GLUCONATE [Concomitant]
     Dates: start: 20020101
  9. PREDNISONE [Concomitant]
     Dates: start: 20040901
  10. HYDROCHLOROTHIAZIDE [Concomitant]
     Route: 048
     Dates: start: 20031220
  11. DILTIAZEM [Concomitant]
     Dates: start: 19990101
  12. MULTI-VITAMINS [Concomitant]
  13. VERAPAMIL HYDROCHLORIDE [Concomitant]

REACTIONS (3)
  - ATRIAL FIBRILLATION [None]
  - CARDIAC FAILURE CONGESTIVE [None]
  - HYPONATRAEMIA [None]
